FAERS Safety Report 13272596 (Version 1)
Quarter: 2017Q1

REPORT INFORMATION
  Report Type: Spontaneous
  Country: US (occurrence: US)
  Receive Date: 20170227
  Receipt Date: 20170227
  Transmission Date: 20170428
  Serious: Yes (Other)
  Sender: FDA-Public Use
  Company Number: US-PFIZER INC-2017079116

PATIENT
  Age: 64 Year
  Sex: Male
  Weight: 72 kg

DRUGS (5)
  1. RIBAVIRIN. [Suspect]
     Active Substance: RIBAVIRIN
     Dosage: UNK
  2. METOPROLOL. [Suspect]
     Active Substance: METOPROLOL
     Indication: HYPERTENSION
     Dosage: 25 MG, 2X/DAY (ONE TABLET IN MORNING AND ONE IN THE EVENING)
  3. ACICLOVIR [Suspect]
     Active Substance: ACYCLOVIR
     Dosage: 800 MG, 1X/DAY
  4. VFEND [Suspect]
     Active Substance: VORICONAZOLE
     Dosage: UNK
  5. FLUCONAZOLE. [Suspect]
     Active Substance: FLUCONAZOLE
     Dosage: 400 MG, DAILY (200 MG TWO TABLETS A DAY)

REACTIONS (5)
  - Tongue discomfort [Recovering/Resolving]
  - Penile burning sensation [Recovering/Resolving]
  - Epidermal necrosis [Recovering/Resolving]
  - Laceration [Recovering/Resolving]
  - Burning sensation [Recovering/Resolving]
